FAERS Safety Report 9563439 (Version 1)
Quarter: 2013Q3

REPORT INFORMATION
  Report Type: Spontaneous
  Country: US (occurrence: None)
  Receive Date: 20130926
  Receipt Date: 20130926
  Transmission Date: 20140515
  Serious: Yes (Hospitalization)
  Sender: FDA-Public Use
  Company Number: None

PATIENT
  Age: 82 Year
  Sex: Female
  Weight: 83.2 kg

DRUGS (6)
  1. BENAZEPRIL [Suspect]
     Indication: HYPERTENSION
     Route: 048
  2. SERTRALINE [Concomitant]
  3. RANITIDINE [Concomitant]
  4. AMLODIPINE [Concomitant]
  5. BENAZEPRIL [Concomitant]
  6. PROPRANOLOL [Concomitant]

REACTIONS (4)
  - Erythema [None]
  - Face oedema [None]
  - Dysphonia [None]
  - Dyspnoea [None]
